FAERS Safety Report 17823783 (Version 1)
Quarter: 2020Q2

REPORT INFORMATION
  Report Type: Spontaneous
  Country: US (occurrence: US)
  Receive Date: 20200523
  Receipt Date: 20200523
  Transmission Date: 20200714
  Serious: Yes (Hospitalization)
  Sender: FDA-Public Use
  Company Number: None

PATIENT
  Age: 66 Year
  Sex: Female
  Weight: 88 kg

DRUGS (1)
  1. ASPIRIN. [Suspect]
     Active Substance: ASPIRIN
     Dates: end: 20200520

REACTIONS (4)
  - Pleural effusion [None]
  - Pneumothorax [None]
  - Osteosarcoma [None]
  - Atelectasis [None]

NARRATIVE: CASE EVENT DATE: 20200509
